FAERS Safety Report 14092138 (Version 3)
Quarter: 2019Q2

REPORT INFORMATION
  Report Type: Spontaneous
  Country: US (occurrence: US)
  Receive Date: 20171016
  Receipt Date: 20190524
  Transmission Date: 20190711
  Serious: No
  Sender: FDA-Public Use
  Company Number: US-PFIZER INC-2017443710

PATIENT
  Age: 46 Year
  Sex: Female

DRUGS (6)
  1. HUMIRA [Concomitant]
     Active Substance: ADALIMUMAB
     Dosage: 40 MG, UNK (EVERY 14 (FOURTEEN) DAYS)
     Route: 058
     Dates: start: 20130930, end: 20131007
  2. METHOTREXATE SODIUM. [Suspect]
     Active Substance: METHOTREXATE SODIUM
     Indication: RHEUMATOID ARTHRITIS
     Dosage: 40 MG, WEEKLY (10 MG 4 TABLETS EVERY 7 DAYS)
     Dates: end: 200703
  3. TRIAMCINOLONE HEXACETONIDE [Concomitant]
     Active Substance: TRIAMCINOLONE HEXACETONIDE
     Indication: RHEUMATOID ARTHRITIS
     Dosage: 1 ML, SINGLE
     Route: 014
     Dates: start: 20130930, end: 20130930
  4. ALEVE [Concomitant]
     Active Substance: NAPROXEN SODIUM
     Indication: ABDOMINAL DISCOMFORT
     Dosage: UNK
  5. OMEPRAZOLE. [Concomitant]
     Active Substance: OMEPRAZOLE
     Indication: ABDOMINAL DISCOMFORT
     Dosage: 20 MG, DAILY
     Route: 048
     Dates: start: 20130930, end: 20150220
  6. PREDNISONE. [Concomitant]
     Active Substance: PREDNISONE
     Dosage: 5 MG, DAILY
     Route: 048
     Dates: start: 20130930, end: 20140313

REACTIONS (11)
  - Arthritis [Unknown]
  - Joint swelling [Unknown]
  - Arthropathy [Unknown]
  - Drug ineffective [Unknown]
  - Arthralgia [Unknown]
  - Drug intolerance [Unknown]
  - Drug hypersensitivity [Unknown]
  - Abdominal pain [Unknown]
  - Gait disturbance [Unknown]
  - Nausea [Unknown]
  - Weight decreased [Unknown]
